FAERS Safety Report 9195813 (Version 2)
Quarter: 2013Q2

REPORT INFORMATION
  Report Type: Spontaneous
  Country: US (occurrence: US)
  Receive Date: 20130328
  Receipt Date: 20130408
  Transmission Date: 20140414
  Serious: Yes (Other)
  Sender: FDA-Public Use
  Company Number: US-BAYER-2013-039010

PATIENT
  Age: 69 Year
  Sex: Female
  Weight: 67.57 kg

DRUGS (17)
  1. BETASERON [Suspect]
     Indication: MULTIPLE SCLEROSIS
     Dosage: 0.25MG, QOD
     Route: 058
  2. PROBIOTICS [Concomitant]
  3. AMPYRA [Concomitant]
  4. BONIVA [Concomitant]
  5. CALTRATE [Concomitant]
  6. COD LIVER [Concomitant]
  7. COQ10 [Concomitant]
  8. CRANBERRY [Concomitant]
  9. GALANTAMINE [Concomitant]
  10. LOSARTAN POTASSIUM W/HYDROCHLOROTHIAZIDE [Concomitant]
  11. MAGNESIUM [Concomitant]
  12. OXYTROL [Concomitant]
  13. PRILOSEC [Concomitant]
  14. PROVIGIL [Concomitant]
  15. STOOL SOFTENER [Concomitant]
  16. VITAMIN D [Concomitant]
     Dosage: UNK
     Dates: start: 1983
  17. ASA [Concomitant]

REACTIONS (2)
  - Urinary tract infection [Unknown]
  - Injection site cellulitis [Unknown]
